FAERS Safety Report 10077054 (Version 2)
Quarter: 2014Q3

REPORT INFORMATION
  Report Type: Spontaneous
  Country: US (occurrence: US)
  Receive Date: 20140414
  Receipt Date: 20140926
  Transmission Date: 20150326
  Serious: No
  Sender: FDA-Public Use
  Company Number: US-LUNDBECK-DKLU1086435

PATIENT
  Age: 10 Year

DRUGS (5)
  1. LAMOTRIGINE. [Concomitant]
     Active Substance: LAMOTRIGINE
     Indication: CONVULSION
  2. PREVACID [Concomitant]
     Active Substance: LANSOPRAZOLE
     Indication: PROPHYLAXIS
     Dates: start: 20120211, end: 20120608
  3. PREDNISONE. [Concomitant]
     Active Substance: PREDNISONE
     Indication: CONVULSION
     Dates: start: 20120214, end: 20120608
  4. ONFI [Suspect]
     Active Substance: CLOBAZAM
     Indication: PRODUCT USED FOR UNKNOWN INDICATION
     Dates: start: 20120328, end: 20120514
  5. ONFI [Suspect]
     Active Substance: CLOBAZAM
     Dates: start: 20120609, end: 20120612

REACTIONS (1)
  - Drug hypersensitivity [Recovered/Resolved]

NARRATIVE: CASE EVENT DATE: 20120508
